FAERS Safety Report 6841988-9 (Version None)
Quarter: 2010Q3

REPORT INFORMATION
  Report Type: 
  Country: None (occurrence: None)
  Receive Date: 20100714
  Receipt Date: 20070718
  Transmission Date: 20110219
  Serious: No
  Sender: FDA-Public Use
  Company Number: US-PFIZER INC-2007060710

PATIENT
  Sex: Female
  Weight: 85.7 kg

DRUGS (12)
  1. CHANTIX [Suspect]
     Indication: SMOKING CESSATION THERAPY
     Dates: start: 20070101
  2. PERCOCET [Interacting]
     Indication: PAIN
     Dosage: 5/325 MG
     Dates: start: 20030101
  3. ACETYLSALICYLIC ACID [Concomitant]
  4. GABAPENTIN [Concomitant]
  5. SIMVASTATIN [Concomitant]
  6. METHYLPREDNISOLONE ACETATE [Concomitant]
  7. PROZAC [Concomitant]
  8. NASONEX [Concomitant]
  9. TAMSULOSIN HYDROCHLORIDE [Concomitant]
  10. VITAMINS [Concomitant]
  11. LORATADINE [Concomitant]
  12. ANTACID TAB [Concomitant]

REACTIONS (2)
  - DRUG INTERACTION [None]
  - THERAPEUTIC RESPONSE UNEXPECTED [None]
